FAERS Safety Report 8204264-8 (Version None)
Quarter: 2012Q1

REPORT INFORMATION
  Report Type: 
  Country: None (occurrence: None)
  Receive Date: 20120309
  Receipt Date: 20120224
  Transmission Date: 20120608
  Serious: Yes (Other)
  Sender: FDA-Public Use
  Company Number: 2012P1007896

PATIENT
  Age: 62 Year
  Sex: Female
  Weight: 83.4619 kg

DRUGS (32)
  1. GLIMEPIRIDE [Concomitant]
  2. MORPHINE [Concomitant]
  3. DIAZEPAM [Concomitant]
  4. FENTANYL [Suspect]
  5. OXYCODONE HCL [Concomitant]
  6. PHENERGAN [Concomitant]
  7. METOPROLOL SUCCINATE [Concomitant]
  8. DEMEROL [Concomitant]
  9. DURAGESIC (NO PREF. NAME) [Suspect]
     Indication: INTERVERTEBRAL DISC DEGENERATION
     Dates: end: 20000101
  10. DURAGESIC (NO PREF. NAME) [Suspect]
     Indication: PAIN IN EXTREMITY
     Dates: end: 20000101
  11. DURAGESIC (NO PREF. NAME) [Suspect]
     Indication: BACK PAIN
     Dates: end: 20000101
  12. BAYCOL [Suspect]
  13. FUROSEMIDE [Concomitant]
  14. HYDROCHLORIDE [Concomitant]
  15. PRENAVITE [Concomitant]
  16. OXYCONTIN [Concomitant]
  17. HYDROCODONE BITARTRATE [Concomitant]
  18. VENLAFAXINE [Concomitant]
  19. FENTANYL [Suspect]
     Indication: INTERVERTEBRAL DISC DEGENERATION
     Dosage: 50-100 MCG/HR
     Dates: start: 20000101
  20. FENTANYL [Suspect]
     Indication: BACK PAIN
     Dosage: 50-100 MCG/HR
     Dates: start: 20000101
  21. FENTANYL [Suspect]
     Indication: PAIN IN EXTREMITY
     Dosage: 50-100 MCG/HR
     Dates: start: 20000101
  22. FENTANYL [Suspect]
     Indication: INTERVERTEBRAL DISC DEGENERATION
     Dosage: 1 PATCH; Q72H, TDER
     Route: 062
  23. FENTANYL [Suspect]
     Indication: BACK PAIN
     Dosage: 1 PATCH; Q72H, TDER
     Route: 062
  24. FENTANYL [Suspect]
     Indication: PAIN IN EXTREMITY
     Dosage: 1 PATCH; Q72H, TDER
     Route: 062
  25. LYRICA [Suspect]
  26. PREVACID [Concomitant]
  27. CLONAZEPAM [Concomitant]
  28. PROMETHAZINE [Concomitant]
  29. LOSARTAN POTASSIUM AND HYDROCHLOROTHIAZIDE [Concomitant]
  30. LOMOTIL [Concomitant]
  31. OTC STOOL SOFTENER (UNSPECIFIED) [Concomitant]
  32. ASPIRIN [Concomitant]

REACTIONS (9)
  - MUSCULAR WEAKNESS [None]
  - ROTATOR CUFF SYNDROME [None]
  - PRODUCT SUBSTITUTION ISSUE [None]
  - DRUG EFFECT DECREASED [None]
  - MUSCLE TWITCHING [None]
  - FALL [None]
  - SYSTEMIC LUPUS ERYTHEMATOSUS [None]
  - ROSACEA [None]
  - INTENTIONAL DRUG MISUSE [None]
